FAERS Safety Report 17504833 (Version 1)
Quarter: 2020Q1

REPORT INFORMATION
  Report Type: Spontaneous
  Country: CA (occurrence: CA)
  Receive Date: 20200305
  Receipt Date: 20200305
  Transmission Date: 20200409
  Serious: Yes (Other)
  Sender: FDA-Public Use
  Company Number: CA-TEVA-2020-CA-1194083

PATIENT
  Sex: Female

DRUGS (3)
  1. BEVACIZUMAB. [Suspect]
     Active Substance: BEVACIZUMAB
     Indication: CERVIX CARCINOMA
     Route: 065
  2. CARBOPLATIN. [Suspect]
     Active Substance: CARBOPLATIN
     Indication: CERVIX CARCINOMA
     Route: 065
  3. PACLITAXEL. [Suspect]
     Active Substance: PACLITAXEL
     Indication: CERVIX CARCINOMA
     Route: 065

REACTIONS (6)
  - Gastrointestinal fistula [Unknown]
  - Pneumoperitoneum [Unknown]
  - Pain in extremity [Unknown]
  - Bacteraemia [Unknown]
  - Deep vein thrombosis [Unknown]
  - Oedema peripheral [Unknown]
